FAERS Safety Report 17515163 (Version 1)
Quarter: 2020Q1

REPORT INFORMATION
  Report Type: Spontaneous
  Country: US (occurrence: US)
  Receive Date: 20200226
  Receipt Date: 20200226
  Transmission Date: 20200409
  Serious: Yes (Other)
  Sender: FDA-Public Use
  Company Number: None

PATIENT
  Age: 82 Year
  Sex: Male
  Weight: 72.57 kg

DRUGS (14)
  1. LISINOPRIL. [Concomitant]
     Active Substance: LISINOPRIL
  2. SULFASALAZINE. [Suspect]
     Active Substance: SULFASALAZINE
     Indication: COLITIS ULCERATIVE
     Dosage: ?          QUANTITY:8 DF DOSAGE FORM;?
     Route: 048
     Dates: start: 20200129, end: 20200202
  3. PANTOPRAZOLE [Concomitant]
     Active Substance: PANTOPRAZOLE
  4. RANOLAZINE. [Concomitant]
     Active Substance: RANOLAZINE
  5. CALCIUM 500+D [Concomitant]
     Active Substance: CALCIUM\VITAMIN D
  6. PREVIDENT [Concomitant]
     Active Substance: SODIUM FLUORIDE
  7. CARVEDILOL. [Concomitant]
     Active Substance: CARVEDILOL
  8. CLOPIDOGREL [Concomitant]
     Active Substance: CLOPIDOGREL BISULFATE
  9. COLESTIPOL [Concomitant]
     Active Substance: COLESTIPOL
  10. DESMOPRESSIN [Concomitant]
     Active Substance: DESMOPRESSIN
  11. ROSUVASTATIN. [Concomitant]
     Active Substance: ROSUVASTATIN
  12. PILOCARPINE 2% [Concomitant]
  13. BABY ASPIRIN [Concomitant]
     Active Substance: ASPIRIN
  14. HEARING AIDS [Concomitant]

REACTIONS (3)
  - Decreased appetite [None]
  - Abdominal pain upper [None]
  - Nausea [None]

NARRATIVE: CASE EVENT DATE: 20200202
